FAERS Safety Report 22261031 (Version 1)
Quarter: 2023Q2

REPORT INFORMATION
  Report Type: Spontaneous
  Country: TR (occurrence: TR)
  Receive Date: 20230427
  Receipt Date: 20230427
  Transmission Date: 20230722
  Serious: Yes (Other)
  Sender: FDA-Public Use
  Company Number: TR-ELI_LILLY_AND_COMPANY-TR202304010896

PATIENT
  Age: 40 Year
  Sex: Female

DRUGS (13)
  1. DULOXETINE HYDROCHLORIDE [Suspect]
     Active Substance: DULOXETINE HYDROCHLORIDE
     Indication: Agitated depression
     Dosage: 30 MG, DAILY
     Route: 065
  2. DULOXETINE HYDROCHLORIDE [Suspect]
     Active Substance: DULOXETINE HYDROCHLORIDE
     Dosage: 60 MG, DAILY
     Route: 065
  3. OLANZAPINE [Suspect]
     Active Substance: OLANZAPINE
     Indication: Agitated depression
     Dosage: 2.5 MG, DAILY
     Route: 065
  4. OLANZAPINE [Suspect]
     Active Substance: OLANZAPINE
     Dosage: 5 MG, DAILY
     Route: 065
  5. OLANZAPINE [Suspect]
     Active Substance: OLANZAPINE
     Dosage: 5 MG, DAILY
     Route: 065
  6. LITHIUM [Suspect]
     Active Substance: LITHIUM
     Indication: Agitated depression
     Dosage: 2 DOSAGE FORM, DAILY
     Route: 065
  7. LITHIUM [Suspect]
     Active Substance: LITHIUM
     Dosage: 900 MG, DAILY
  8. LITHIUM [Suspect]
     Active Substance: LITHIUM
     Dosage: 2 DOSAGE FORM, DAILY
     Route: 065
  9. ESCITALOPRAM OXALATE [Suspect]
     Active Substance: ESCITALOPRAM OXALATE
     Indication: Agitated depression
     Dosage: 10 MG, DAILY
     Route: 065
  10. ESCITALOPRAM OXALATE [Suspect]
     Active Substance: ESCITALOPRAM OXALATE
     Dosage: 15 MG, DAILY
     Route: 065
  11. VENLAFAXINE [Suspect]
     Active Substance: VENLAFAXINE HYDROCHLORIDE
     Indication: Agitated depression
     Dosage: UNK, UP TO 225 COMBINATIONS (6 WEEKS)
     Route: 065
  12. MIRTAZAPINE [Suspect]
     Active Substance: MIRTAZAPINE
     Indication: Agitated depression
     Dosage: 15 MG, DAILY COMBINATIONS (6 WEEKS)
     Route: 065
  13. SULPIRIDE [Suspect]
     Active Substance: SULPIRIDE
     Indication: Agitated depression
     Dosage: 100 MG, DAILY COMBINATIONS (6 WEEKS)

REACTIONS (5)
  - Agitated depression [Recovering/Resolving]
  - Suicide attempt [Recovering/Resolving]
  - Swelling face [Recovered/Resolved]
  - Tremor [Recovered/Resolved]
  - Drug ineffective [Unknown]
